FAERS Safety Report 16970126 (Version 1)
Quarter: 2019Q4

REPORT INFORMATION
  Report Type: Spontaneous
  Country: JP (occurrence: JP)
  Receive Date: 20191029
  Receipt Date: 20191029
  Transmission Date: 20200122
  Serious: Yes (Other)
  Sender: FDA-Public Use
  Company Number: JP-HQ SPECIALTY-JP-2019INT000281

PATIENT
  Age: 85 Year
  Sex: Male

DRUGS (4)
  1. FENTANYL. [Suspect]
     Active Substance: FENTANYL
     Indication: SEDATION
     Dosage: 50 TO 100 ?G, PRN (AS NECESSARY)
     Route: 065
  2. FENTANYL. [Suspect]
     Active Substance: FENTANYL
     Dosage: 250 ?G, UNK
     Route: 065
  3. DEXMEDETOMIDINE HYDROCHLORIDE. [Suspect]
     Active Substance: DEXMEDETOMIDINE HYDROCHLORIDE
     Indication: SEDATION
     Dosage: 0.1 TO 0.2 ?G/KG, (1 HR)
     Route: 065
  4. PROPOFOL. [Suspect]
     Active Substance: PROPOFOL
     Indication: SEDATION
     Dosage: 1.0 TO 2.0 MG/KG, (1 HR)
     Route: 065

REACTIONS (5)
  - Therapeutic product effect incomplete [Unknown]
  - Respiratory depression [Recovering/Resolving]
  - Sedation complication [Recovering/Resolving]
  - Anaesthetic complication [Unknown]
  - Movement disorder [Unknown]
